FAERS Safety Report 9770428 (Version 1)
Quarter: 2013Q4

REPORT INFORMATION
  Report Type: Spontaneous
  Country: IT (occurrence: IT)
  Receive Date: 20131218
  Receipt Date: 20131218
  Transmission Date: 20140711
  Serious: Yes (Hospitalization)
  Sender: FDA-Public Use
  Company Number: PHHY2013IT147492

PATIENT
  Age: 67 Year
  Sex: Male

DRUGS (1)
  1. GLYCERYL TRINITRATE [Suspect]
     Indication: ANGINA PECTORIS
     Dosage: 10 MG, UNK
     Route: 062
     Dates: start: 20131118, end: 20131118

REACTIONS (2)
  - Abdominal pain upper [Recovered/Resolved]
  - Chest pain [Recovered/Resolved]
